FAERS Safety Report 5196018-4 (Version None)
Quarter: 2006Q4

REPORT INFORMATION
  Report Type: 
  Country: None (occurrence: None)
  Receive Date: 20061227
  Receipt Date: 20061211
  Transmission Date: 20070319
  Serious: Yes (Hospitalization)
  Sender: FDA-Public Use
  Company Number: 8020927

PATIENT
  Sex: Female
  Weight: 13 kg

DRUGS (1)
  1. KEPPRA [Suspect]
     Dates: start: 20060301

REACTIONS (1)
  - HOSPITALISATION [None]
